FAERS Safety Report 4497956-8 (Version None)
Quarter: 2004Q4

REPORT INFORMATION
  Report Type: 
  Country: None (occurrence: None)
  Receive Date: 20041105
  Receipt Date: 20041020
  Transmission Date: 20050328
  Serious: Yes (Hospitalization)
  Sender: FDA-Public Use
  Company Number: PHEH2004US11264

PATIENT
  Age: 87 Year
  Sex: Female

DRUGS (10)
  1. VISUDYNE [Suspect]
     Dates: start: 20041020, end: 20041020
  2. ARICEPT [Concomitant]
  3. ASPIRIN [Concomitant]
  4. LIPITOR [Concomitant]
  5. IMDUR [Concomitant]
  6. NITROGLYCERIN [Concomitant]
  7. ALTACE [Concomitant]
  8. XANAX [Concomitant]
  9. DARVOCET [Concomitant]
  10. TENORMIN [Concomitant]

REACTIONS (9)
  - ANGINA UNSTABLE [None]
  - BLOOD PRESSURE DIASTOLIC DECREASED [None]
  - CIRCULATORY COLLAPSE [None]
  - FATIGUE [None]
  - HYPERHIDROSIS [None]
  - LOSS OF CONSCIOUSNESS [None]
  - MYOCARDIAL INFARCTION [None]
  - SKIN DISCOLOURATION [None]
  - SYNCOPE [None]
